FAERS Safety Report 8823157 (Version 2)
Quarter: 2012Q4

REPORT INFORMATION
  Report Type: 
  Country: HR (occurrence: HR)
  Receive Date: 20121003
  Receipt Date: 20121011
  Transmission Date: 20130627
  Serious: Yes (Other)
  Sender: FDA-Public Use
  Company Number: HR-PFIZER INC-2012244824

PATIENT
  Age: 50 Year
  Sex: Male
  Weight: 82 kg

DRUGS (3)
  1. LYRICA [Suspect]
     Indication: EPILEPSY
     Dosage: 300 mg, 2x/day
     Route: 048
  2. TRILEPTAL [Concomitant]
     Indication: EPILEPSY
     Dosage: 600 mg, 2x/day
     Route: 048
  3. LAMAL [Concomitant]
     Indication: EPILEPSY
     Dosage: 150 mg, 2x/day
     Route: 048

REACTIONS (3)
  - Erectile dysfunction [Unknown]
  - Dysarthria [Unknown]
  - Tremor [Unknown]
